FAERS Safety Report 9319496 (Version 2)
Quarter: 2013Q2

REPORT INFORMATION
  Report Type: Spontaneous
  Country: US (occurrence: US)
  Receive Date: 20130530
  Receipt Date: 20130626
  Transmission Date: 20140414
  Serious: No
  Sender: FDA-Public Use
  Company Number: US-009507513-1305USA017215

PATIENT
  Sex: Female
  Weight: 92.63 kg

DRUGS (3)
  1. MIRALAX [Suspect]
     Indication: DIVERTICULUM
     Dosage: 17 G, BID
     Route: 048
     Dates: start: 200912, end: 2013
  2. MIRALAX [Suspect]
     Indication: DIVERTICULITIS
  3. MIRALAX [Suspect]
     Indication: MEDICAL OBSERVATION

REACTIONS (3)
  - Inappropriate schedule of drug administration [Unknown]
  - Incorrect drug administration duration [Unknown]
  - Product physical issue [Unknown]
